FAERS Safety Report 16707157 (Version 1)
Quarter: 2019Q3

REPORT INFORMATION
  Report Type: Report from Study
  Country: PL (occurrence: PL)
  Receive Date: 20190815
  Receipt Date: 20190815
  Transmission Date: 20191004
  Serious: Yes (Life-Threatening)
  Sender: FDA-Public Use
  Company Number: PL-MYLANLABS-2019M1076468

PATIENT
  Age: 57 Year
  Sex: Male

DRUGS (1)
  1. PRASUGREL. [Suspect]
     Active Substance: PRASUGREL
     Indication: ANTIPLATELET THERAPY
     Route: 065

REACTIONS (1)
  - Drug ineffective [Unknown]
